FAERS Safety Report 4633160-8 (Version None)
Quarter: 2005Q2

REPORT INFORMATION
  Report Type: 
  Country: None (occurrence: None)
  Receive Date: 20050412
  Receipt Date: 20050330
  Transmission Date: 20051028
  Serious: Yes (Other)
  Sender: FDA-Public Use
  Company Number: US-NOVOPROD-243261

PATIENT
  Age: 84 Year
  Sex: Male
  Weight: 84 kg

DRUGS (18)
  1. NOVOSEVEN [Suspect]
     Indication: SUBDURAL HAEMATOMA
     Dosage: 7.2 MG, SINGLE
     Route: 042
     Dates: start: 20050324, end: 20050324
  2. DILANTIN [Concomitant]
     Indication: PROPHYLAXIS
     Dates: start: 20050319, end: 20050327
  3. LOPRESSOR [Concomitant]
     Indication: HYPERTENSION
     Dates: start: 20050319, end: 20050327
  4. AMIODARONE [Concomitant]
     Indication: ATRIAL FIBRILLATION
     Dates: start: 20050319, end: 20050327
  5. CARAFATE [Concomitant]
     Indication: PROPHYLAXIS
     Dates: start: 20050319, end: 20050327
  6. MORPHINE SULFATE [Concomitant]
     Indication: PAIN
     Dosage: UNK, PRN
  7. ATIVAN [Concomitant]
     Indication: AGITATION
     Dosage: UNK, PRN
     Dates: start: 20050319, end: 20050327
  8. LASIX [Concomitant]
     Indication: CARDIAC FAILURE CONGESTIVE
  9. VITAMIN K [Concomitant]
     Indication: COAGULATION TIME PROLONGED
     Dates: start: 20050323, end: 20050326
  10. AVELOX [Concomitant]
     Indication: PROPHYLAXIS
     Dates: start: 20050326, end: 20050327
  11. ASPIRIN [Concomitant]
     Indication: PROPHYLAXIS
  12. PREVACID [Concomitant]
     Indication: PEPTIC ULCER
  13. PRANDIN [Concomitant]
     Indication: INSULIN-REQUIRING TYPE II DIABETES MELLITUS
  14. FLOMAX [Concomitant]
     Indication: BENIGN PROSTATIC HYPERPLASIA
  15. COLACE [Concomitant]
     Indication: CONSTIPATION
  16. CLARITIN [Concomitant]
     Indication: HYPERSENSITIVITY
  17. RESTORIL [Concomitant]
     Indication: INSOMNIA
  18. RED BLOOD CELLS [Concomitant]
     Indication: SUBDURAL HAEMATOMA
     Dates: start: 20050325, end: 20050325

REACTIONS (5)
  - CONDITION AGGRAVATED [None]
  - HAEMOGLOBIN DECREASED [None]
  - PROTHROMBIN TIME PROLONGED [None]
  - SUBDURAL HAEMATOMA [None]
  - TRANSIENT ISCHAEMIC ATTACK [None]
